FAERS Safety Report 26028176 (Version 1)
Quarter: 2025Q4

REPORT INFORMATION
  Report Type: Spontaneous
  Country: CN (occurrence: CN)
  Receive Date: 20251111
  Receipt Date: 20251111
  Transmission Date: 20260117
  Serious: Yes (Other)
  Sender: SANDOZ
  Company Number: CN-002147023-NVSC2025CN171932

PATIENT
  Age: 46 Year
  Sex: Female
  Weight: 51 kg

DRUGS (3)
  1. DEXTRAN 70\HYPROMELLOSES [Suspect]
     Active Substance: DEXTRAN 70\HYPROMELLOSES
     Indication: Conjunctivitis
     Dosage: 3 DROP, TID
     Route: 047
     Dates: start: 20251027, end: 20251027
  2. DEXAMETHASONE\TOBRAMYCIN [Suspect]
     Active Substance: DEXAMETHASONE\TOBRAMYCIN
     Indication: Conjunctivitis
     Dosage: 4 DROP, QD
     Route: 047
     Dates: start: 20251027, end: 20251027
  3. LEVOFLOXACIN [Suspect]
     Active Substance: LEVOFLOXACIN
     Indication: Conjunctivitis
     Dosage: 0.2 G, QD
     Route: 047
     Dates: start: 20251027, end: 20251027

REACTIONS (3)
  - Corneal exfoliation [Recovering/Resolving]
  - Photophobia [Recovering/Resolving]
  - Conjunctivitis [Recovering/Resolving]

NARRATIVE: CASE EVENT DATE: 20251027
